FAERS Safety Report 12327258 (Version 1)
Quarter: 2016Q2

REPORT INFORMATION
  Report Type: Spontaneous
  Country: US (occurrence: None)
  Receive Date: 20160502
  Receipt Date: 20160502
  Transmission Date: 20160815
  Serious: Yes (Hospitalization)
  Sender: FDA-Public Use
  Company Number: None

PATIENT
  Age: 64 Year
  Sex: Female
  Weight: 124.9 kg

DRUGS (1)
  1. METFORMIN HYDROCHLORIDE. [Suspect]
     Active Substance: METFORMIN HYDROCHLORIDE
     Dates: end: 20160203

REACTIONS (9)
  - Infection [None]
  - Dyspnoea [None]
  - Wheezing [None]
  - Chest X-ray abnormal [None]
  - Diarrhoea [None]
  - Cough [None]
  - Body temperature increased [None]
  - Hyperglycaemia [None]
  - Pulmonary mass [None]

NARRATIVE: CASE EVENT DATE: 20160203
